FAERS Safety Report 20900056 (Version 1)
Quarter: 2022Q2

REPORT INFORMATION
  Report Type: Spontaneous
  Country: US (occurrence: None)
  Receive Date: 20220531
  Receipt Date: 20220531
  Transmission Date: 20220721
  Serious: No
  Sender: FDA-Public Use
  Company Number: None

PATIENT
  Sex: Female

DRUGS (1)
  1. DEVICE [Suspect]
     Active Substance: DEVICE
     Indication: Osteoporosis
     Dosage: FREQUENCY : DAILY?
     Route: 058
     Dates: start: 202204

REACTIONS (3)
  - Product dispensing error [None]
  - Multiple use of single-use product [None]
  - Device use issue [None]
